FAERS Safety Report 15397228 (Version 1)
Quarter: 2018Q3

REPORT INFORMATION
  Report Type: Spontaneous
  Country: US (occurrence: US)
  Receive Date: 20180913
  Receipt Date: 20180913
  Transmission Date: 20181010
  Serious: Yes (Life-Threatening, Hospitalization, Other)
  Sender: FDA-Public Use
  Company Number: None

PATIENT
  Age: 11 Year
  Sex: Male
  Weight: 24.4 kg

DRUGS (3)
  1. LEVETIRACETAM. [Suspect]
     Active Substance: LEVETIRACETAM
     Indication: CONVULSION PROPHYLAXIS
     Route: 048
     Dates: start: 20180803, end: 20180901
  2. DEXAMETHASONE. [Suspect]
     Active Substance: DEXAMETHASONE
     Indication: MEDULLOBLASTOMA
     Route: 048
     Dates: start: 20180803, end: 20180903
  3. PANTOPRAZOLE [Concomitant]
     Active Substance: PANTOPRAZOLE
     Dates: start: 20180803, end: 20180901

REACTIONS (31)
  - Lip erythema [None]
  - Oral mucosal erythema [None]
  - Dermatitis bullous [None]
  - Mycoplasma infection [None]
  - Oral mucosal discolouration [None]
  - Exfoliative rash [None]
  - Conjunctival hyperaemia [None]
  - Neutrophil count decreased [None]
  - Rash [None]
  - Viral rash [None]
  - Eye disorder [None]
  - Tongue discolouration [None]
  - Rash vesicular [None]
  - Swelling face [None]
  - Urticaria [None]
  - Drug ineffective [None]
  - Stevens-Johnson syndrome [None]
  - Skin hyperpigmentation [None]
  - Stomatitis [None]
  - Oral mucosal exfoliation [None]
  - Adenovirus infection [None]
  - Pruritus [None]
  - Skin lesion [None]
  - Dermatitis contact [None]
  - Insomnia [None]
  - Genital rash [None]
  - Skin exfoliation [None]
  - Rash maculo-papular [None]
  - Rash erythematous [None]
  - Conjunctivitis [None]
  - Epidermolysis [None]

NARRATIVE: CASE EVENT DATE: 20180829
